FAERS Safety Report 9950255 (Version 2)
Quarter: 2014Q1

REPORT INFORMATION
  Report Type: Report from Study
  Country: US (occurrence: US)
  Receive Date: 20140304
  Receipt Date: 20140304
  Transmission Date: 20141002
  Serious: Yes (Other)
  Sender: FDA-Public Use
  Company Number: US-ABBVIE-12P-163-0990432-00

PATIENT
  Age: 50 Year
  Sex: Female
  Weight: 48.4 kg

DRUGS (5)
  1. HUMIRA [Suspect]
     Indication: CROHN^S DISEASE
     Dosage: FOR 1 MONTH ONLY
  2. HUMIRA [Suspect]
     Dosage: 160MG LOADING DOSE AND 80MG LOADING DOSE ONLY
  3. HUMIRA [Suspect]
     Dosage: INJECT 3.2 ML ONCE AS DIRECTED
     Dates: start: 20121001
  4. ALLERGY MEDICATION [Concomitant]
     Indication: SEASONAL ALLERGY
     Dosage: OVER THE COUNTER
  5. PENTASA [Concomitant]
     Indication: PRODUCT USED FOR UNKNOWN INDICATION

REACTIONS (1)
  - Ileocolectomy [Unknown]
